FAERS Safety Report 7675730-9 (Version None)
Quarter: 2011Q3

REPORT INFORMATION
  Report Type: 
  Country: None (occurrence: None)
  Receive Date: 20110810
  Receipt Date: 20110802
  Transmission Date: 20111222
  Serious: Yes (Other)
  Sender: FDA-Public Use
  Company Number: PHHY2011PL70753

PATIENT
  Sex: Female

DRUGS (2)
  1. RANITIDINE [Suspect]
  2. ALCOHOL [Interacting]

REACTIONS (6)
  - MALAISE [None]
  - CONFUSIONAL STATE [None]
  - DIZZINESS [None]
  - LOSS OF CONSCIOUSNESS [None]
  - DRUG LEVEL ABOVE THERAPEUTIC [None]
  - DRUG INTERACTION [None]
